FAERS Safety Report 6283553-0 (Version None)
Quarter: 2009Q3

REPORT INFORMATION
  Report Type: 
  Country: None (occurrence: None)
  Receive Date: 20090724
  Receipt Date: 20090723
  Transmission Date: 20100115
  Serious: Yes (Hospitalization)
  Sender: FDA-Public Use
  Company Number: PT-GENENTECH-284687

PATIENT
  Age: 37 Year
  Sex: Female

DRUGS (6)
  1. RITUXIMAB [Suspect]
     Indication: OVERLAP SYNDROME
     Dosage: 1 G, Q2W
  2. ACETAMINOPHEN [Concomitant]
     Indication: PREMEDICATION
     Route: 048
  3. CLEMASTIN [Concomitant]
     Indication: PREMEDICATION
  4. HYDROCORTISONE [Concomitant]
     Indication: PREMEDICATION
  5. PREDNISOLONE [Concomitant]
     Indication: OVERLAP SYNDROME
     Dosage: UNK
  6. METHOTREXATE [Concomitant]
     Indication: OVERLAP SYNDROME
     Dosage: 25 MG, 1/WEEK

REACTIONS (1)
  - FEBRILE NEUTROPENIA [None]
